FAERS Safety Report 16625781 (Version 2)
Quarter: 2020Q1

REPORT INFORMATION
  Report Type: Spontaneous
  Country: GB (occurrence: GB)
  Receive Date: 20190724
  Receipt Date: 20200302
  Transmission Date: 20200409
  Serious: Yes (Other)
  Sender: FDA-Public Use
  Company Number: GB-MYLANLABS-2019M1068190

PATIENT
  Age: 68 Year
  Sex: Female
  Weight: 82 kg

DRUGS (14)
  1. EMPAGLIFLOZIN [Concomitant]
     Active Substance: EMPAGLIFLOZIN
     Dosage: 10 MILLIGRAM, QD
     Dates: start: 20181108
  2. METFORMIN [Concomitant]
     Active Substance: METFORMIN HYDROCHLORIDE
     Dosage: 500 MILLIGRAM (1 ONCE A DAY FOR A WEEK THEN INCREASE TO 1 TWICE A DAY WITH MEALS.)
     Dates: start: 20190124
  3. RAMIPRIL. [Concomitant]
     Active Substance: RAMIPRIL
     Dosage: 10 MILLIGRAM, QD
     Dates: start: 20181109
  4. DERMOL                             /01330701/ [Concomitant]
     Dosage: UNK (USE AS SOAP SUBSTITUTE)
     Dates: start: 20181122
  5. METFORMIN [Concomitant]
     Active Substance: METFORMIN HYDROCHLORIDE
     Dosage: 500 MILLIGRAM, BID (1 ONCE A DAY FOR A WEEK THEN INCREASE TO 1 TWICE A DAY WITH MEALS.)
  6. FLUTIFORM [Concomitant]
     Active Substance: FLUTICASONE PROPIONATE\FORMOTEROL FUMARATE
     Indication: ASTHMA
     Dosage: 4 DOSAGE FORM, QD (50MICROGRAMS/DOSE / 5MICROGRAMS)
     Route: 055
     Dates: start: 20181109
  7. FUROSEMIDE. [Concomitant]
     Active Substance: FUROSEMIDE
     Dosage: 20 MILLIGRAM, PRN (MORNING)
     Dates: start: 20181108
  8. CLOBETASONE [Concomitant]
     Active Substance: CLOBETASONE
     Dosage: UNK UNK, QD (APPLY THINLY ONCE OR TWICE DAILY)
     Dates: start: 20181129
  9. MICONAZOLE. [Concomitant]
     Active Substance: MICONAZOLE
     Dosage: 2 DOSAGE FORM, QD (TO AFFECTED AREAS FOR UP TO 2 WEEKS)
     Dates: start: 20181122
  10. LINAGLIPTIN [Concomitant]
     Active Substance: LINAGLIPTIN
     Dosage: 5 MILLIGRAM, QD
     Dates: start: 20181109
  11. ATORVASTATIN [Concomitant]
     Active Substance: ATORVASTATIN
     Dosage: 20 MILLIGRAM, QD (NIGHT)
     Dates: start: 20181109
  12. PIOGLITAZONE. [Suspect]
     Active Substance: PIOGLITAZONE
     Indication: PRODUCT USED FOR UNKNOWN INDICATION
     Dosage: 15 MILLIGRAM
     Route: 048
     Dates: start: 20180516, end: 20181031
  13. AMLODIPINE [Concomitant]
     Active Substance: AMLODIPINE BESYLATE
     Dosage: 5 MILLIGRAM, QD
     Dates: start: 20181109
  14. BALNEUM PLUS                       /01148801/ [Concomitant]
     Indication: DRY SKIN
     Dosage: UNK
     Dates: start: 20181122

REACTIONS (4)
  - Pericardial effusion [Recovering/Resolving]
  - Fluid retention [Unknown]
  - Cardiac failure [Recovering/Resolving]
  - Dyspnoea [Recovering/Resolving]

NARRATIVE: CASE EVENT DATE: 20181019
